FAERS Safety Report 9337441 (Version 2)
Quarter: 2013Q4

REPORT INFORMATION
  Report Type: Spontaneous
  Country: NO (occurrence: NO)
  Receive Date: 20130607
  Receipt Date: 20131004
  Transmission Date: 20140711
  Serious: Yes (Life-Threatening, Hospitalization)
  Sender: FDA-Public Use
  Company Number: NO-ACTAVIS-2013-09972

PATIENT
  Age: 83 Year
  Sex: Female

DRUGS (5)
  1. DONEPEZIL (UNKNOWN) [Suspect]
     Indication: DEMENTIA ALZHEIMER^S TYPE
     Dosage: 10 MG, DAILY
     Route: 048
     Dates: start: 20130304, end: 20130411
  2. METOPROLOL (UNKNOWN) [Interacting]
     Indication: HYPERTENSION
     Dosage: 200 MG, DAILY
     Route: 048
     Dates: end: 20130411
  3. ENALAPRIL W/HYDROCHLOROTHIAZIDE [Concomitant]
     Indication: HYPERTENSION
     Dosage: 1 DF, DAILY; 20 MG ENALAPRIL/12,5 MG HYDROCHLOROTIAZIDE
     Route: 065
  4. ALENDRONIC ACID [Concomitant]
     Indication: OSTEOPOROSIS
     Dosage: 70 MG, 1/WEEK
     Route: 065
  5. OVESTERIN [Concomitant]
     Indication: OSTEOPOROSIS
     Dosage: 1 MG, DAILY
     Route: 065

REACTIONS (6)
  - Atrioventricular block [Not Recovered/Not Resolved]
  - Dyspnoea [Not Recovered/Not Resolved]
  - Nausea [Not Recovered/Not Resolved]
  - Chest pain [Not Recovered/Not Resolved]
  - Bradycardia [Not Recovered/Not Resolved]
  - Drug interaction [Not Recovered/Not Resolved]
